FAERS Safety Report 5864242-0 (Version None)
Quarter: 2008Q3

REPORT INFORMATION
  Report Type: 
  Country: None (occurrence: None)
  Receive Date: 20080829
  Receipt Date: 20080528
  Transmission Date: 20090109
  Serious: No
  Sender: FDA-Public Use
  Company Number: US-ABBOTT-08P-163-0453559-00

PATIENT
  Sex: Male
  Weight: 83.99 kg

DRUGS (7)
  1. SIMCOR [Suspect]
     Indication: BLOOD CHOLESTEROL INCREASED
     Dosage: ONE TABLET DAILY
     Route: 048
     Dates: start: 20080401
  2. AMITROPTOLINE [Concomitant]
     Indication: DEPRESSION
     Route: 048
  3. TYLOX [Concomitant]
     Indication: COMPLEX REGIONAL PAIN SYNDROME
     Route: 048
  4. MORPHINE [Concomitant]
     Indication: COMPLEX REGIONAL PAIN SYNDROME
     Route: 048
  5. LISINOPRIL [Concomitant]
     Indication: HYPERTENSION
     Dosage: 20/12.5 MILLIGRAMS DAILY
     Route: 048
  6. ACTOS PLUS [Concomitant]
     Indication: DIABETES MELLITUS
     Dosage: 3 PER DAY, 2 IN THE AM AND ONE AT NIGHT
     Route: 048
  7. SERTRALINE [Concomitant]
     Indication: DEPRESSION
     Route: 048

REACTIONS (3)
  - DIZZINESS [None]
  - FLUSHING [None]
  - HOT FLUSH [None]
